FAERS Safety Report 4868225-9 (Version None)
Quarter: 2005Q4

REPORT INFORMATION
  Report Type: 
  Country: None (occurrence: None)
  Receive Date: 20051223
  Receipt Date: 20051211
  Transmission Date: 20060501
  Serious: Yes (Disabling, Other)
  Sender: FDA-Public Use
  Company Number: 2005167266

PATIENT
  Age: 55 Year
  Sex: Male
  Weight: 122.4712 kg

DRUGS (3)
  1. VIAGRA [Suspect]
     Indication: ERECTILE DYSFUNCTION
     Dosage: 50 MG (50 MG,)
     Dates: start: 20050101
  2. TALWIN [Suspect]
     Indication: PAIN
     Dates: start: 20051101
  3. METFORMIN HCL [Concomitant]

REACTIONS (5)
  - BACK INJURY [None]
  - BLOOD PRESSURE INCREASED [None]
  - DRUG INEFFECTIVE [None]
  - FALL [None]
  - INTERVERTEBRAL DISC INJURY [None]
